FAERS Safety Report 24686673 (Version 1)
Quarter: 2024Q4

REPORT INFORMATION
  Report Type: Spontaneous
  Country: US (occurrence: None)
  Receive Date: 20241129
  Receipt Date: 20241129
  Transmission Date: 20250114
  Serious: Yes (Hospitalization)
  Sender: Public
  Company Number: None

PATIENT
  Age: 32 Year
  Sex: Female
  Weight: 49.5 kg

DRUGS (2)
  1. LEVOFLOXACIN [Suspect]
     Active Substance: LEVOFLOXACIN
     Indication: Bronchitis
     Dosage: OTHER QUANTITY : 7 TABLET(S);?
     Route: 048
     Dates: start: 20241118, end: 20241122
  2. PREDNISONE [Suspect]
     Active Substance: PREDNISONE

REACTIONS (5)
  - Muscular weakness [None]
  - Tremor [None]
  - Seizure [None]
  - Dysarthria [None]
  - Musculoskeletal stiffness [None]

NARRATIVE: CASE EVENT DATE: 20241119
